FAERS Safety Report 21930649 (Version 1)
Quarter: 2023Q1

REPORT INFORMATION
  Report Type: Spontaneous
  Country: US (occurrence: US)
  Receive Date: 20230131
  Receipt Date: 20230131
  Transmission Date: 20230417
  Serious: No
  Sender: FDA-Public Use
  Company Number: US-SA-SAC20230127001653

PATIENT
  Age: 77 Year
  Sex: Male
  Weight: 80.69 kg

DRUGS (4)
  1. DUPIXENT [Suspect]
     Active Substance: DUPILUMAB
     Indication: Dermatitis atopic
     Dosage: 300 MG, QOW
     Route: 058
     Dates: start: 20220902
  2. ARGININE HCL [ARGININE] [Concomitant]
  3. CALCIUM ALGINATE [Concomitant]
     Active Substance: CALCIUM ALGINATE
  4. VITAMIN D NOS [Concomitant]
     Active Substance: VITAMIN D NOS

REACTIONS (4)
  - Breast pain [Unknown]
  - Breast swelling [Unknown]
  - Lacrimation increased [Not Recovered/Not Resolved]
  - Eye pruritus [Recovering/Resolving]

NARRATIVE: CASE EVENT DATE: 20220901
